FAERS Safety Report 24284556 (Version 1)
Quarter: 2024Q3

REPORT INFORMATION
  Report Type: Spontaneous
  Country: US (occurrence: US)
  Receive Date: 20240905
  Receipt Date: 20240905
  Transmission Date: 20241016
  Serious: No
  Sender: JOHNSON AND JOHNSON
  Company Number: US-JNJFOC-20240901812

PATIENT
  Sex: Female

DRUGS (3)
  1. SPRAVATO [Suspect]
     Active Substance: ESKETAMINE
     Indication: Product used for unknown indication
  2. SPRAVATO [Suspect]
     Active Substance: ESKETAMINE
     Dates: start: 20230623
  3. SPRAVATO [Suspect]
     Active Substance: ESKETAMINE
     Dates: start: 20230929

REACTIONS (4)
  - Dental caries [Unknown]
  - Tooth extraction [Unknown]
  - Endodontic procedure [Unknown]
  - Dental implantation [Unknown]
